FAERS Safety Report 4524557-5 (Version None)
Quarter: 2004Q4

REPORT INFORMATION
  Report Type: 
  Country: None (occurrence: None)
  Receive Date: 20041117
  Receipt Date: 20040323
  Transmission Date: 20050328
  Serious: Yes (Other)
  Sender: FDA-Public Use
  Company Number: US-JNJFOC-20040300487

PATIENT
  Age: 57 Year
  Sex: Female

DRUGS (8)
  1. LEVAQUIN [Suspect]
     Indication: URINARY TRACT INFECTION
     Dosage: 250 MG
     Dates: start: 20040207, end: 20040216
  2. REBIF [Suspect]
     Indication: MULTIPLE SCLEROSIS
  3. AMANTADINE (AMANTADINE [Concomitant]
  4. PANTOPRAZOLE (PANTOPRAZOLE [Concomitant]
  5. ALPRAZOLAM [Concomitant]
  6. VENLAFAXINE HCL [Concomitant]
  7. SUMATRIPTAN (SUMATRIPTAN) [Concomitant]
  8. BACTRIM [Concomitant]

REACTIONS (9)
  - ANAEMIA [None]
  - ATAXIA [None]
  - CONFUSIONAL STATE [None]
  - DYSARTHRIA [None]
  - DYSKINESIA [None]
  - DYSPHAGIA [None]
  - GRAND MAL CONVULSION [None]
  - MUSCLE CRAMP [None]
  - PYREXIA [None]
